FAERS Safety Report 5155101-X (Version None)
Quarter: 2006Q4

REPORT INFORMATION
  Report Type: 
  Country: None (occurrence: None)
  Receive Date: 20061121
  Receipt Date: 20061115
  Transmission Date: 20070319
  Serious: Yes (Hospitalization)
  Sender: FDA-Public Use
  Company Number: SE-GLAXOSMITHKLINE-B0447410A

PATIENT
  Age: 67 Year
  Sex: Male

DRUGS (14)
  1. ZOVIRAX [Suspect]
     Indication: HERPES ZOSTER
     Dosage: 800MG PER DAY
     Route: 048
     Dates: start: 20060912, end: 20060912
  2. ARANESP [Concomitant]
  3. PERSANTIN [Concomitant]
  4. INSULATARD NPH HUMAN [Concomitant]
  5. MOVICOL [Concomitant]
  6. PLENDIL [Concomitant]
  7. ATARAX [Concomitant]
  8. ALVEDON [Concomitant]
  9. THERALENE [Concomitant]
  10. ORALOVITE [Concomitant]
  11. UNKNOWN DRUG [Concomitant]
  12. DEXOFEN [Concomitant]
  13. CALCICHEW-D3 [Concomitant]
  14. NOVORAPID [Concomitant]

REACTIONS (4)
  - CONVULSION [None]
  - DRUG LEVEL INCREASED [None]
  - TREMOR [None]
  - VOMITING [None]
